FAERS Safety Report 7789195-X (Version None)
Quarter: 2011Q3

REPORT INFORMATION
  Report Type: 
  Country: None (occurrence: None)
  Receive Date: 20110930
  Receipt Date: 20110926
  Transmission Date: 20111222
  Serious: Yes (Other)
  Sender: FDA-Public Use
  Company Number: AU-PFIZER INC-2011227255

PATIENT
  Age: 63 Year
  Sex: Male

DRUGS (1)
  1. SUTENT [Suspect]
     Indication: NEOPLASM MALIGNANT
     Dosage: 50 MG, 1X/DAY
     Dates: start: 20110907

REACTIONS (5)
  - DIARRHOEA [None]
  - JAUNDICE [None]
  - VOMITING [None]
  - PAIN [None]
  - CONSTIPATION [None]
